FAERS Safety Report 7302411-3 (Version None)
Quarter: 2011Q1

REPORT INFORMATION
  Report Type: 
  Country: None (occurrence: None)
  Receive Date: 20110218
  Receipt Date: 20110215
  Transmission Date: 20110831
  Serious: No
  Sender: FDA-Public Use
  Company Number: US-PFIZER INC-2011033769

PATIENT
  Sex: Female
  Weight: 70.3 kg

DRUGS (3)
  1. ADVIL CONGESTION RELIEF [Suspect]
     Indication: NASAL DISORDER
  2. ADVIL CONGESTION RELIEF [Suspect]
     Indication: DYSPNOEA
  3. ADVIL CONGESTION RELIEF [Suspect]
     Indication: SINUSITIS
     Dosage: 200/10 MG, DAILY
     Route: 048
     Dates: start: 20110215

REACTIONS (1)
  - DRUG INEFFECTIVE [None]
